FAERS Safety Report 25036974 (Version 1)
Quarter: 2025Q1

REPORT INFORMATION
  Report Type: Spontaneous
  Country: US (occurrence: US)
  Receive Date: 20250304
  Receipt Date: 20250304
  Transmission Date: 20250408
  Serious: Yes (Other)
  Sender: PFIZER
  Company Number: US-PFIZER INC-202500046946

PATIENT
  Age: 58 Year
  Sex: Female

DRUGS (3)
  1. IBRANCE [Suspect]
     Active Substance: PALBOCICLIB
     Dates: start: 2020
  2. IBRANCE [Suspect]
     Active Substance: PALBOCICLIB
  3. AMITRIPTYLINE [Concomitant]
     Active Substance: AMITRIPTYLINE

REACTIONS (10)
  - Cerebrovascular accident [Recovering/Resolving]
  - Asthenia [Recovering/Resolving]
  - Migraine [Recovering/Resolving]
  - Hypotension [Recovering/Resolving]
  - Bronchitis [Recovering/Resolving]
  - Wheezing [Not Recovered/Not Resolved]
  - Blood calcium decreased [Recovering/Resolving]
  - Vitamin D decreased [Recovering/Resolving]
  - Nausea [Not Recovered/Not Resolved]
  - Wrong technique in product usage process [Unknown]

NARRATIVE: CASE EVENT DATE: 20200101
